FAERS Safety Report 9048844 (Version 1)
Quarter: 2013Q1

REPORT INFORMATION
  Report Type: Spontaneous
  Country: US (occurrence: None)
  Receive Date: 20130130
  Receipt Date: 20130130
  Transmission Date: 20140127
  Serious: No
  Sender: FDA-Public Use
  Company Number: None

PATIENT
  Sex: Male

DRUGS (1)
  1. ENBREL SURECLICK AMGEN [Suspect]
     Indication: RHEUMATOID ARTHRITIS
     Dates: start: 20120229

REACTIONS (2)
  - Discomfort [None]
  - Injection site rash [None]
